FAERS Safety Report 21297947 (Version 1)
Quarter: 2022Q3

REPORT INFORMATION
  Report Type: Spontaneous
  Country: US (occurrence: None)
  Receive Date: 20220904
  Receipt Date: 20220904
  Transmission Date: 20221026
  Serious: Yes (Life-Threatening, Hospitalization, Disabling, Other)
  Sender: FDA-Public Use
  Company Number: None

PATIENT
  Age: 56 Year
  Sex: Female
  Weight: 124.74 kg

DRUGS (4)
  1. ROPINIROLE [Suspect]
     Active Substance: ROPINIROLE
  2. RISPERDAL [Suspect]
     Active Substance: RISPERIDONE
  3. ZOLOFT [Concomitant]
     Active Substance: SERTRALINE HYDROCHLORIDE
  4. CLONAZEPAM [Concomitant]
     Active Substance: CLONAZEPAM

REACTIONS (8)
  - Illness [None]
  - Unevaluable event [None]
  - Amnesia [None]
  - Movement disorder [None]
  - Back pain [None]
  - Dyspnoea [None]
  - Peripheral swelling [None]
  - Feeling abnormal [None]

NARRATIVE: CASE EVENT DATE: 20220904
